FAERS Safety Report 13599177 (Version 2)
Quarter: 2018Q2

REPORT INFORMATION
  Report Type: Report from Study
  Country: US (occurrence: US)
  Receive Date: 20170531
  Receipt Date: 20180619
  Transmission Date: 20180711
  Serious: Yes (Other)
  Sender: FDA-Public Use
  Company Number: US-ARIAD-2017US008265

PATIENT
  Age: 58 Year
  Sex: Female

DRUGS (2)
  1. PONATINIB [Suspect]
     Active Substance: PONATINIB
     Indication: CHRONIC MYELOID LEUKAEMIA
     Dosage: 45 MG, QD
     Route: 048
     Dates: start: 20170521
  2. PONATINIB [Suspect]
     Active Substance: PONATINIB
     Dosage: 30 MG, QD
     Route: 048

REACTIONS (4)
  - Salivary hypersecretion [Unknown]
  - Haemoptysis [Unknown]
  - Abdominal pain [Unknown]
  - Headache [Unknown]

NARRATIVE: CASE EVENT DATE: 20170521
